FAERS Safety Report 16961182 (Version 1)
Quarter: 2019Q4

REPORT INFORMATION
  Report Type: Spontaneous
  Country: FR (occurrence: FR)
  Receive Date: 20191025
  Receipt Date: 20191025
  Transmission Date: 20200122
  Serious: Yes (Hospitalization)
  Sender: FDA-Public Use
  Company Number: FR-ACCORD-159063

PATIENT
  Age: 67 Year
  Sex: Male
  Weight: 114 kg

DRUGS (14)
  1. PERINDOPRIL/PERINDOPRIL ERBUMINE [Suspect]
     Active Substance: PERINDOPRIL ERBUMINE
     Indication: HYPERTENSION
     Route: 048
     Dates: end: 20190605
  2. LEVOTHYROX [Concomitant]
     Active Substance: LEVOTHYROXINE
     Dosage: 25 MICROGRAMS, SCORED TABLET
  3. LAROXYL [Concomitant]
     Active Substance: AMITRIPTYLINE HYDROCHLORIDE
  4. RISPERIDONE. [Concomitant]
     Active Substance: RISPERIDONE
  5. SPIRONOLACTONE. [Suspect]
     Active Substance: SPIRONOLACTONE
     Indication: HYPERTENSION
     Route: 048
     Dates: end: 20190605
  6. LANTUS [Concomitant]
     Active Substance: INSULIN GLARGINE
  7. FUROSEMIDE. [Suspect]
     Active Substance: FUROSEMIDE
     Indication: HYPERTENSION
     Route: 048
     Dates: end: 20190605
  8. TERALITHE [Concomitant]
     Active Substance: LITHIUM CARBONATE
     Dosage: 400 MG, SCORED TABLET EXTENDED RELEASE
  9. NOVORAPID [Concomitant]
     Active Substance: INSULIN ASPART
  10. AMLODIPINE [Concomitant]
     Active Substance: AMLODIPINE BESYLATE
  11. LACTULOSE. [Concomitant]
     Active Substance: LACTULOSE
  12. LOVENOX [Concomitant]
     Active Substance: ENOXAPARIN SODIUM
  13. FOLIC ACID. [Concomitant]
     Active Substance: FOLIC ACID
  14. NEBIVOLOL/NEBIVOLOL HYDROCHLORIDE [Concomitant]

REACTIONS (1)
  - Acute kidney injury [Recovering/Resolving]

NARRATIVE: CASE EVENT DATE: 20190605
